FAERS Safety Report 6700318-3 (Version None)
Quarter: 2010Q2

REPORT INFORMATION
  Report Type: 
  Country: None (occurrence: None)
  Receive Date: 20100428
  Receipt Date: 20100421
  Transmission Date: 20101027
  Serious: Yes (Death, Hospitalization, Other)
  Sender: FDA-Public Use
  Company Number: JP-ROCHE-665253

PATIENT
  Sex: Female
  Weight: 40 kg

DRUGS (14)
  1. XELODA [Suspect]
     Indication: BREAST CANCER METASTATIC
     Dosage: XELODA 300(CAPECITABINE)
     Route: 048
     Dates: start: 20080222, end: 20090213
  2. XELODA [Suspect]
     Dosage: 2 WEEKS ADMINISTRATION FOLLOWED BY 1 WEEK REST.
     Route: 048
     Dates: start: 20090410, end: 20090717
  3. XELODA [Suspect]
     Dosage: 2 WEEKS ADMINISTRATION FOLLOWED BY 1 WEEK REST.
     Route: 048
     Dates: start: 20100108, end: 20100330
  4. HERCEPTIN [Suspect]
     Indication: BREAST CANCER METASTATIC
     Route: 041
     Dates: start: 20070608, end: 20070608
  5. HERCEPTIN [Suspect]
     Route: 041
     Dates: start: 20070615, end: 20100319
  6. ENDOXAN [Suspect]
     Indication: BREAST CANCER METASTATIC
     Route: 048
     Dates: start: 20090410, end: 20090717
  7. TAXOTERE [Suspect]
     Indication: BREAST CANCER METASTATIC
     Route: 041
     Dates: start: 20090227, end: 20090227
  8. LIPITOR [Concomitant]
     Dosage: LIPITOR(ATORVASTATIN CALCIUM)
     Route: 048
     Dates: end: 20100330
  9. PONTAL [Concomitant]
     Route: 048
     Dates: end: 20100330
  10. SELBEX [Concomitant]
     Route: 048
     Dates: end: 20100330
  11. OXYCONTIN [Concomitant]
     Dosage: OXYCONTIN(OXYCODONE HYDROCHLORIDE), SUSTAINED-RELEASE TABLET
     Route: 048
     Dates: start: 20100219, end: 20100330
  12. OXINORM [Concomitant]
     Dosage: OXINORM(OXYCODONE HYDROCHLORIDE), SINGLE USE, POWDERED MEDICINE
     Route: 048
     Dates: start: 20100219, end: 20100330
  13. MAGNESIUM OXIDE [Concomitant]
     Dosage: UNKNOWNDRUG(MAGNESIUM OXIDE)
     Route: 048
     Dates: start: 20100219, end: 20100330
  14. NOVAMIN (PROCHLORPERAZINE) [Concomitant]
     Dosage: NOVAMIN(PROCHLORPERAZINE MALEATE)
     Route: 048
     Dates: start: 20100305, end: 20100330

REACTIONS (4)
  - CELLULITIS [None]
  - INTERSTITIAL LUNG DISEASE [None]
  - PALMAR-PLANTAR ERYTHRODYSAESTHESIA SYNDROME [None]
  - VISION BLURRED [None]
